FAERS Safety Report 9154025 (Version 1)
Quarter: 2013Q1

REPORT INFORMATION
  Report Type: Spontaneous
  Country: US (occurrence: None)
  Receive Date: 20130306
  Receipt Date: 20130306
  Transmission Date: 20140127
  Serious: Yes (Other)
  Sender: FDA-Public Use
  Company Number: None

PATIENT
  Sex: Male
  Weight: 83.92 kg

DRUGS (1)
  1. TAMIFLU ^75MG [Suspect]
     Indication: INFLUENZA
     Dosage: 10 DOSE TWICE A DAY

REACTIONS (3)
  - Nausea [None]
  - Abdominal pain [None]
  - Headache [None]
